FAERS Safety Report 22537636 (Version 1)
Quarter: 2023Q2

REPORT INFORMATION
  Report Type: Spontaneous
  Country: GB (occurrence: GB)
  Receive Date: 20230608
  Receipt Date: 20230608
  Transmission Date: 20230722
  Serious: Yes (Other)
  Sender: FDA-Public Use
  Company Number: GB-MHRA-MED-202306010936559280-ZJRYN

PATIENT
  Age: 38 Year
  Sex: Male

DRUGS (1)
  1. BETAMETHASONE DIPROPIONATE [Suspect]
     Active Substance: BETAMETHASONE DIPROPIONATE
     Dosage: 0.05% OINTMENT; ;

REACTIONS (2)
  - Medication error [Unknown]
  - Topical steroid withdrawal reaction [Not Recovered/Not Resolved]

NARRATIVE: CASE EVENT DATE: 20230105
